FAERS Safety Report 9709426 (Version 1)
Quarter: 2013Q4

REPORT INFORMATION
  Report Type: Report from Study
  Country: US (occurrence: US)
  Receive Date: 20131126
  Receipt Date: 20131126
  Transmission Date: 20140711
  Serious: Yes (Other)
  Sender: FDA-Public Use
  Company Number: US-ROCHE-1308840

PATIENT
  Sex: 0

DRUGS (1)
  1. CAPECITABINE [Suspect]
     Indication: PANCREATIC CARCINOMA METASTATIC
     Dosage: 3-WEEK CYCLES CONSISTING OF 2 WEEKS OF TREATMENT FOLLOWED BY 1 WEEK WITHOUT TREATMENT.
     Route: 048

REACTIONS (10)
  - Diarrhoea [Unknown]
  - Palmar-plantar erythrodysaesthesia syndrome [Unknown]
  - Nausea [Unknown]
  - Vomiting [Unknown]
  - Fatigue [Unknown]
  - Decreased appetite [Unknown]
  - Mucosal inflammation [Unknown]
  - Abdominal pain [Unknown]
  - Dehydration [Unknown]
  - Lymphopenia [Unknown]
